FAERS Safety Report 5102576-8 (Version None)
Quarter: 2006Q3

REPORT INFORMATION
  Report Type: 
  Country: None (occurrence: None)
  Receive Date: 20060907
  Receipt Date: 20060825
  Transmission Date: 20061208
  Serious: Yes (Hospitalization, Other)
  Sender: FDA-Public Use
  Company Number: GXKR2006TW05321

PATIENT
  Age: 18 Year
  Sex: Female

DRUGS (2)
  1. THIAMAZOLE (NGX) (THIAMAZOLE) UNKNOWN [Suspect]
     Indication: HYPERTHYROIDISM
     Dates: start: 20000615
  2. PROPRANOLOL [Concomitant]

REACTIONS (7)
  - ACUTE RESPIRATORY FAILURE [None]
  - ANAEMIA [None]
  - ANTI-NEUTROPHIL CYTOPLASMIC ANTIBODY POSITIVE VASCULITIS [None]
  - CAPILLARY DISORDER [None]
  - GOITRE [None]
  - MUSCULAR WEAKNESS [None]
  - PULMONARY HAEMORRHAGE [None]
